FAERS Safety Report 23959639 (Version 1)
Quarter: 2024Q2

REPORT INFORMATION
  Report Type: Other
  Country: CA (occurrence: None)
  Receive Date: 20240611
  Receipt Date: 20240611
  Transmission Date: 20240716
  Serious: No
  Sender: FDA-Public Use
  Company Number: CA-ROCHE-3579531

PATIENT
  Sex: Female

DRUGS (5)
  1. OCREVUS [Suspect]
     Active Substance: OCRELIZUMAB
     Indication: Primary progressive multiple sclerosis
     Dosage: 300 MG AT DAY 0 AND 14, THEN 600 MG EVERY 6 MONTHS
     Route: 042
     Dates: start: 20191116
  2. VALTREX [Concomitant]
     Active Substance: VALACYCLOVIR HYDROCHLORIDE
  3. ZOPICLONE [Concomitant]
     Active Substance: ZOPICLONE
  4. PERINDOPRIL [Concomitant]
     Active Substance: PERINDOPRIL
  5. ATIVAN [Concomitant]
     Active Substance: LORAZEPAM

REACTIONS (4)
  - Oral herpes [Recovered/Resolved]
  - Menopause [Unknown]
  - Arthritis [Not Recovered/Not Resolved]
  - Insomnia [Recovered/Resolved]
